FAERS Safety Report 12157971 (Version 1)
Quarter: 2016Q1

REPORT INFORMATION
  Report Type: Report from Study
  Country: SK (occurrence: SK)
  Receive Date: 20160308
  Receipt Date: 20160308
  Transmission Date: 20160526
  Serious: Yes (Hospitalization)
  Sender: FDA-Public Use
  Company Number: SK-BIOGEN-2016BI00194697

PATIENT
  Age: 51 Year
  Sex: Male

DRUGS (6)
  1. TYSABRI [Suspect]
     Active Substance: NATALIZUMAB
     Indication: MULTIPLE SCLEROSIS
     Route: 042
     Dates: start: 20130423
  2. CAVINTON FORTE [Concomitant]
     Indication: HYPERTENSION
     Route: 048
  3. HELICID [Concomitant]
     Indication: GASTROOESOPHAGEAL REFLUX DISEASE
     Route: 048
  4. NOLIPREL FORTE [Concomitant]
     Indication: HYPERTENSION
     Dosage: 5/1.2 MILLIGRAMS
     Route: 048
  5. LEXAURIN [Concomitant]
     Active Substance: BROMAZEPAM
     Indication: ANXIETY
     Route: 048
  6. PIRABENE [Concomitant]
     Indication: MULTIPLE SCLEROSIS
     Route: 048

REACTIONS (2)
  - Back pain [Recovered/Resolved with Sequelae]
  - Neck pain [Recovered/Resolved with Sequelae]

NARRATIVE: CASE EVENT DATE: 20151027
